FAERS Safety Report 13514939 (Version 1)
Quarter: 2017Q2

REPORT INFORMATION
  Report Type: Spontaneous
  Country: US (occurrence: US)
  Receive Date: 20170504
  Receipt Date: 20170504
  Transmission Date: 20170830
  Serious: No
  Sender: FDA-Public Use
  Company Number: US-GLAXOSMITHKLINE-US2017063979

PATIENT
  Age: 84 Year
  Sex: Female

DRUGS (12)
  1. ANORO ELLIPTA [Suspect]
     Active Substance: UMECLIDINIUM BROMIDE\VILANTEROL TRIFENATATE
     Indication: DYSPNOEA
  2. DULOXETINE. [Concomitant]
     Active Substance: DULOXETINE
  3. FLONASE ALLERGY RELIEF [Suspect]
     Active Substance: FLUTICASONE PROPIONATE
     Indication: UPPER-AIRWAY COUGH SYNDROME
  4. FLONASE ALLERGY RELIEF [Suspect]
     Active Substance: FLUTICASONE PROPIONATE
     Indication: PRODUCTIVE COUGH
  5. ALBUTEROL. [Suspect]
     Active Substance: ALBUTEROL
     Indication: PRODUCT USED FOR UNKNOWN INDICATION
  6. ADVAIR DISKUS [Suspect]
     Active Substance: FLUTICASONE PROPIONATE\SALMETEROL XINAFOATE
     Indication: CHRONIC OBSTRUCTIVE PULMONARY DISEASE
  7. ANORO ELLIPTA [Suspect]
     Active Substance: UMECLIDINIUM BROMIDE\VILANTEROL TRIFENATATE
     Indication: CHRONIC OBSTRUCTIVE PULMONARY DISEASE
  8. FLONASE ALLERGY RELIEF [Suspect]
     Active Substance: FLUTICASONE PROPIONATE
     Indication: BRONCHIAL DISORDER
     Dosage: 2 DF, QD
     Route: 045
     Dates: start: 20161110
  9. ADVAIR DISKUS [Suspect]
     Active Substance: FLUTICASONE PROPIONATE\SALMETEROL XINAFOATE
     Indication: BRONCHITIS CHRONIC
     Dosage: 1 PUFF(S), BID
     Route: 055
     Dates: start: 20170319
  10. ANORO ELLIPTA [Suspect]
     Active Substance: UMECLIDINIUM BROMIDE\VILANTEROL TRIFENATATE
     Indication: OXYGEN SATURATION DECREASED
  11. ANORO ELLIPTA [Suspect]
     Active Substance: UMECLIDINIUM BROMIDE\VILANTEROL TRIFENATATE
     Indication: BRONCHITIS CHRONIC
     Dosage: 1 PUFF(S), BID
     Route: 055
     Dates: start: 20170324
  12. KLONOPIN [Concomitant]
     Active Substance: CLONAZEPAM

REACTIONS (12)
  - Headache [Recovered/Resolved]
  - Asthenia [Recovered/Resolved]
  - Eye disorder [Recovered/Resolved]
  - Feeling jittery [Unknown]
  - Nervousness [Unknown]
  - Secretion discharge [Unknown]
  - Dyspnoea [Unknown]
  - Drug ineffective [Unknown]
  - Overdose [Unknown]
  - Fatigue [Recovered/Resolved]
  - Heart rate increased [Recovered/Resolved]
  - Product use in unapproved indication [Unknown]

NARRATIVE: CASE EVENT DATE: 201703
